FAERS Safety Report 4654318-8 (Version None)
Quarter: 2005Q2

REPORT INFORMATION
  Report Type: 
  Country: None (occurrence: None)
  Receive Date: 20050404
  Receipt Date: 20041116
  Transmission Date: 20051028
  Serious: No
  Sender: FDA-Public Use
  Company Number: USA041082544

PATIENT
  Sex: Female
  Weight: 63 kg

DRUGS (16)
  1. CYMBALTA [Suspect]
     Indication: DEPRESSION
     Dosage: 60 MG
     Dates: start: 20041004, end: 20041025
  2. PAROXETINE HYDROCHLORIDE [Concomitant]
  3. NITROQUICK (GLYCERYL TRINITRATE) [Concomitant]
  4. ZOCOR (SIMVASTATIN RATIOPHARM) [Concomitant]
  5. PLAVIX [Concomitant]
  6. NORVASC [Concomitant]
  7. IMDUR [Concomitant]
  8. ASPIRIN [Concomitant]
  9. PROTONIX [Concomitant]
  10. CIMETIDINE [Concomitant]
  11. CELEBREX [Concomitant]
  12. NAPROXEN SODIUM [Concomitant]
  13. AMBIEN [Concomitant]
  14. NASONEX [Concomitant]
  15. DURATUSS GP [Concomitant]
  16. ACETAMINOPHEN AND CODEINE NO. 3 [Concomitant]

REACTIONS (1)
  - DYSKINESIA [None]
